FAERS Safety Report 7913510-7 (Version None)
Quarter: 2011Q4

REPORT INFORMATION
  Report Type: 
  Country: None (occurrence: None)
  Receive Date: 20111110
  Receipt Date: 20111027
  Transmission Date: 20120403
  Serious: Yes (Death)
  Sender: FDA-Public Use
  Company Number: 1000025170

PATIENT
  Age: 67 Year
  Sex: Male

DRUGS (1)
  1. ROFLUMILAST (ROFLUMILAST) (TABLETS) [Suspect]
     Indication: CHRONIC OBSTRUCTIVE PULMONARY DISEASE
     Dates: start: 20110101, end: 20110101

REACTIONS (1)
  - CARDIAC DISORDER [None]
